FAERS Safety Report 10665488 (Version 1)
Quarter: 2014Q4

REPORT INFORMATION
  Report Type: Spontaneous
  Country: US (occurrence: None)
  Receive Date: 20141208
  Receipt Date: 20141208
  Transmission Date: 20150529
  Serious: No
  Sender: FDA-Public Use
  Company Number: 2014TUS006388

PATIENT
  Age: 54 Year
  Sex: Female
  Weight: 80.7 kg

DRUGS (4)
  1. KLOR-CON [Concomitant]
     Active Substance: POTASSIUM CHLORIDE
  2. XANAX [Concomitant]
     Active Substance: ALPRAZOLAM
  3. LASIX [Concomitant]
     Active Substance: FUROSEMIDE
  4. BRINTELLIX [Suspect]
     Active Substance: VORTIOXETINE HYDROBROMIDE
     Indication: MAJOR DEPRESSION
     Route: 048
     Dates: start: 20140312, end: 20140411

REACTIONS (1)
  - Arthralgia [None]

NARRATIVE: CASE EVENT DATE: 20140428
